FAERS Safety Report 5607097-1 (Version None)
Quarter: 2008Q1

REPORT INFORMATION
  Report Type: 
  Country: None (occurrence: None)
  Receive Date: 20080129
  Receipt Date: 20080117
  Transmission Date: 20080703
  Serious: Yes (Other)
  Sender: FDA-Public Use
  Company Number: BR-PFIZER INC-2007089069

PATIENT
  Sex: Female
  Weight: 45 kg

DRUGS (2)
  1. ALDACTONE [Suspect]
     Indication: ACNE
     Route: 048
     Dates: start: 20070929, end: 20070101
  2. GRACIAL [Concomitant]
     Route: 048

REACTIONS (3)
  - BLOOD PRESSURE DECREASED [None]
  - NAUSEA [None]
  - SYNCOPE [None]
